FAERS Safety Report 8315091-5 (Version None)
Quarter: 2012Q2

REPORT INFORMATION
  Report Type: 
  Country: None (occurrence: None)
  Receive Date: 20120426
  Receipt Date: 20120419
  Transmission Date: 20120825
  Serious: Yes (Hospitalization)
  Sender: FDA-Public Use
  Company Number: US-BAYER-2012-010025

PATIENT
  Age: 50 Year
  Sex: Female
  Weight: 61.224 kg

DRUGS (6)
  1. ASCORBIC ACID [Concomitant]
     Indication: VITAMIN SUPPLEMENTATION
  2. MULTI-VITAMINS [Concomitant]
     Indication: VITAMIN SUPPLEMENTATION
  3. FLEXERIL [Concomitant]
     Dosage: UNK
     Dates: start: 20040924
  4. ORTHO-NOVUM [ETHINYLESTRADIOL,NORETHISTERONE] [Concomitant]
     Dosage: UNK
     Dates: start: 19750101
  5. CALCIUM [Concomitant]
     Indication: VITAMIN SUPPLEMENTATION
  6. YASMIN [Suspect]
     Dosage: UNK
     Dates: start: 20030601, end: 20041201

REACTIONS (5)
  - PELVIC VENOUS THROMBOSIS [None]
  - PAIN [None]
  - OEDEMA PERIPHERAL [None]
  - DEEP VEIN THROMBOSIS [None]
  - EMOTIONAL DISTRESS [None]
